FAERS Safety Report 15420113 (Version 1)
Quarter: 2018Q4

REPORT INFORMATION
  Report Type: Report from Study
  Country: IT (occurrence: IT)
  Receive Date: 20180924
  Receipt Date: 20180924
  Transmission Date: 20190204
  Serious: Yes (Other)
  Sender: FDA-Public Use
  Company Number: IT-TEVA-2018-IT-957985

PATIENT
  Age: 58 Year
  Sex: Female

DRUGS (2)
  1. ANEXATE 1 MG/10 ML SOLUZIONE INIETTABILE PER USO ENDOVENOSO [Interacting]
     Active Substance: FLUMAZENIL
     Indication: TOXICITY TO VARIOUS AGENTS
     Route: 042
     Dates: start: 20180827, end: 20180827
  2. LORAZEPAM. [Suspect]
     Active Substance: LORAZEPAM
     Indication: SUICIDE ATTEMPT
     Route: 048

REACTIONS (6)
  - Psychomotor hyperactivity [Recovered/Resolved]
  - Suicide attempt [Recovered/Resolved]
  - Hyporesponsive to stimuli [Recovered/Resolved]
  - Sopor [Recovered/Resolved]
  - Intentional overdose [Recovered/Resolved]
  - Alcohol interaction [Recovered/Resolved]

NARRATIVE: CASE EVENT DATE: 20180827
